FAERS Safety Report 5412539-0 (Version None)
Quarter: 2007Q3

REPORT INFORMATION
  Report Type: 
  Country: None (occurrence: None)
  Receive Date: 20070813
  Receipt Date: 20070808
  Transmission Date: 20080115
  Serious: Yes (Life-Threatening)
  Sender: FDA-Public Use
  Company Number: B0482563A

PATIENT
  Age: 60 Year
  Sex: Male

DRUGS (5)
  1. ULTIVA [Suspect]
     Route: 042
     Dates: start: 20070712, end: 20070712
  2. TRACRIUM [Suspect]
     Dosage: 40MG PER DAY
     Route: 042
     Dates: start: 20070712, end: 20070712
  3. AMOXICILLIN AND CLAVULANATE POTASSIUM [Suspect]
     Indication: ANTIBIOTIC PROPHYLAXIS
     Route: 042
     Dates: start: 20070712, end: 20070712
  4. DIPRIVAN [Suspect]
     Dosage: 190MG PER DAY
     Route: 042
     Dates: start: 20070712, end: 20070712
  5. SUPRANE [Suspect]
     Route: 065
     Dates: start: 20070712, end: 20070712

REACTIONS (4)
  - ANAPHYLACTIC SHOCK [None]
  - HYPOTENSION [None]
  - MECHANICAL VENTILATION COMPLICATION [None]
  - TACHYCARDIA [None]
